FAERS Safety Report 5153780-4 (Version None)
Quarter: 2006Q4

REPORT INFORMATION
  Report Type: 
  Country: None (occurrence: None)
  Receive Date: 20061120
  Receipt Date: 20061108
  Transmission Date: 20070319
  Serious: Yes (Hospitalization)
  Sender: FDA-Public Use
  Company Number: US-JNJFOC-20061103237

PATIENT
  Sex: Male
  Weight: 88.45 kg

DRUGS (9)
  1. FENTANYL TRANSDERMAL SYSTEM [Suspect]
     Indication: ANKYLOSING SPONDYLITIS
     Route: 062
  2. DURAGESIC-100 [Suspect]
     Indication: ANKYLOSING SPONDYLITIS
     Route: 062
  3. XANAX [Concomitant]
     Indication: DRUG USE FOR UNKNOWN INDICATION
     Route: 048
  4. WELLBUTRIN [Concomitant]
     Indication: DEPRESSION
     Route: 048
  5. PERCOCET [Concomitant]
     Indication: PAIN
     Dosage: AS NEEDED
     Route: 048
  6. OXYCONTIN [Concomitant]
     Indication: PAIN
     Route: 048
  7. EFFEXOR [Concomitant]
     Indication: DRUG USE FOR UNKNOWN INDICATION
     Route: 048
  8. TRAZODONE HCL [Concomitant]
     Indication: DRUG USE FOR UNKNOWN INDICATION
     Dosage: 1-5 TIMES A DAY
     Route: 048
  9. LUNESTA [Concomitant]
     Indication: SLEEP DISORDER
     Dosage: AT NIGHT
     Route: 048

REACTIONS (11)
  - AGITATION [None]
  - ANKYLOSING SPONDYLITIS [None]
  - APPLICATION SITE ERYTHEMA [None]
  - APPLICATION SITE PRURITUS [None]
  - APPLICATION SITE VESICLES [None]
  - BLOOD CHOLESTEROL INCREASED [None]
  - DISCOMFORT [None]
  - DRUG WITHDRAWAL SYNDROME [None]
  - INCORRECT DRUG ADMINISTRATION DURATION [None]
  - PAIN [None]
  - THINKING ABNORMAL [None]
